FAERS Safety Report 8548813-9 (Version None)
Quarter: 2012Q3

REPORT INFORMATION
  Report Type: 
  Country: None (occurrence: None)
  Receive Date: 20120730
  Receipt Date: 20120719
  Transmission Date: 20120928
  Serious: Yes (Other)
  Sender: FDA-Public Use
  Company Number: US-US-EMD SERONO, INC.-7149032

PATIENT
  Sex: Female

DRUGS (5)
  1. LISINOPRIL [Concomitant]
     Dates: start: 20120701
  2. LASIX [Concomitant]
     Indication: HYPERTENSION
  3. LISINOPRIL [Concomitant]
     Indication: HYPERTENSION
     Dates: end: 20120701
  4. REBIF [Suspect]
     Indication: MULTIPLE SCLEROSIS
     Route: 058
     Dates: start: 20101223
  5. PREDNISONE [Concomitant]
     Indication: PRODUCT USED FOR UNKNOWN INDICATION
     Dates: start: 20100101, end: 20120101

REACTIONS (7)
  - ABDOMINAL PAIN UPPER [None]
  - NECK PAIN [None]
  - INJECTION SITE PAIN [None]
  - INJECTION SITE PRURITUS [None]
  - BLOOD PRESSURE FLUCTUATION [None]
  - RASH PAPULAR [None]
  - INFLUENZA LIKE ILLNESS [None]
